FAERS Safety Report 6184535-X (Version None)
Quarter: 2009Q2

REPORT INFORMATION
  Report Type: 
  Country: None (occurrence: None)
  Receive Date: 20090508
  Receipt Date: 20090428
  Transmission Date: 20091009
  Serious: Yes (Other)
  Sender: FDA-Public Use
  Company Number: IE-AMGEN-QUU335808

PATIENT
  Sex: Male
  Weight: 58 kg

DRUGS (2)
  1. NEULASTA [Suspect]
     Indication: NEUTROPENIA
     Route: 058
     Dates: start: 20081202
  2. CALCIUM [Concomitant]

REACTIONS (1)
  - THROMBOCYTOPENIA [None]
